FAERS Safety Report 22658953 (Version 3)
Quarter: 2023Q4

REPORT INFORMATION
  Report Type: Spontaneous
  Country: GB (occurrence: GB)
  Receive Date: 20230630
  Receipt Date: 20231129
  Transmission Date: 20240110
  Serious: Yes (Death, Other)
  Sender: FDA-Public Use
  Company Number: None

PATIENT
  Age: 76 Year
  Sex: Female

DRUGS (1)
  1. OLANZAPINE [Suspect]
     Active Substance: OLANZAPINE
     Indication: Depression
     Dosage: UNKNOWN
     Route: 048
     Dates: start: 20230512, end: 20230525

REACTIONS (2)
  - Electrocardiogram QT prolonged [Fatal]
  - Atrioventricular block [Fatal]
